FAERS Safety Report 10951662 (Version 2)
Quarter: 2015Q2

REPORT INFORMATION
  Report Type: Spontaneous
  Country: US (occurrence: US)
  Receive Date: 20150324
  Receipt Date: 20150525
  Transmission Date: 20150821
  Serious: No
  Sender: FDA-Public Use
  Company Number: US-JNJFOC-20130709172

PATIENT
  Sex: Male
  Weight: 61.69 kg

DRUGS (2)
  1. RISPERDAL CONSTA [Suspect]
     Active Substance: RISPERIDONE
     Indication: PRODUCT USED FOR UNKNOWN INDICATION
     Route: 030
  2. HALOPERIDOL. [Concomitant]
     Active Substance: HALOPERIDOL
     Route: 048

REACTIONS (2)
  - Medication error [Unknown]
  - Drug dose omission [Unknown]
